FAERS Safety Report 6610820-0 (Version None)
Quarter: 2010Q1

REPORT INFORMATION
  Report Type: 
  Country: None (occurrence: None)
  Receive Date: 20100302
  Receipt Date: 20100218
  Transmission Date: 20100710
  Serious: Yes (Other)
  Sender: FDA-Public Use
  Company Number: US-PFIZER INC-2010021931

PATIENT
  Age: 6 Year
  Sex: Male

DRUGS (2)
  1. ZOLOFT [Suspect]
     Dosage: 25 MG, UNK
  2. ZOLOFT [Suspect]
     Dosage: UNK

REACTIONS (2)
  - ANXIETY [None]
  - OBSESSIVE-COMPULSIVE DISORDER [None]
